FAERS Safety Report 19651014 (Version 5)
Quarter: 2024Q2

REPORT INFORMATION
  Report Type: Report from Study
  Country: IL (occurrence: IL)
  Receive Date: 20210802
  Receipt Date: 20240517
  Transmission Date: 20240716
  Serious: Yes (Hospitalization)
  Sender: FDA-Public Use
  Company Number: IL-ABBVIE-21K-082-3896177-00

PATIENT
  Age: 65 Year
  Sex: Male
  Weight: 92 kg

DRUGS (11)
  1. RINVOQ [Suspect]
     Active Substance: UPADACITINIB
     Indication: Rheumatoid arthritis
     Dosage: 15 MILLIGRAM?LAST ADMIN DATE;2021
     Route: 048
     Dates: start: 20210118
  2. RISEDRONATE SODIUM [Concomitant]
     Active Substance: RISEDRONATE SODIUM
     Indication: Product used for unknown indication
     Dosage: 150 MG
     Route: 048
     Dates: start: 201905
  3. ENOXAPARIN SODIUM [Concomitant]
     Active Substance: ENOXAPARIN SODIUM
     Indication: Prophylaxis
     Route: 058
     Dates: start: 20210726, end: 20210802
  4. OMEPRAZOLE [Concomitant]
     Active Substance: DONEPEZIL HYDROCHLORIDE\OMEPRAZOLE\OMEPRAZOLE MAGNESIUM
     Indication: Prophylaxis
     Route: 048
     Dates: start: 20210726, end: 20210802
  5. DIPYRONE [Concomitant]
     Active Substance: DIPYRONE
     Indication: COVID-19
     Dosage: FREQUENCY TEXT: PER NEEDED
     Route: 048
     Dates: start: 20210726
  6. SARS-CoV-2 vaccine [Concomitant]
     Indication: COVID-19 immunisation
     Dosage: 3RD DOSE
     Route: 030
     Dates: start: 20220207, end: 20220207
  7. OXACATIN [Concomitant]
     Indication: COVID-19
     Dosage: FREQUENCY TEXT: AS NEEDED
     Route: 048
     Dates: start: 20210726, end: 20210802
  8. IPRATROPIUM BROMIDE [Concomitant]
     Active Substance: IPRATROPIUM BROMIDE\IPRATROPIUM BROMIDE ANHYDROUS
     Indication: COVID-19
     Dosage: TIME INTERVAL: 0.33333333 DAYS
     Route: 055
     Dates: start: 20210726, end: 20210802
  9. INFLUENZA VIRUS VACCINE [Concomitant]
     Active Substance: INFLUENZA VIRUS VACCINE
     Indication: Immunisation
     Dates: start: 20220102, end: 20220102
  10. INFLUENZA VIRUS VACCINE [Concomitant]
     Active Substance: INFLUENZA VIRUS VACCINE
     Indication: Immunisation
     Dosage: SEASONAL INFLUENZA
     Dates: start: 20201018, end: 20201018
  11. DEXAMETHASONE [Concomitant]
     Active Substance: DEXAMETHASONE
     Indication: Prophylaxis
     Route: 048
     Dates: start: 20210726, end: 20210802

REACTIONS (4)
  - COVID-19 [Recovered/Resolved]
  - Oxygen saturation decreased [Unknown]
  - Rash papular [Not Recovered/Not Resolved]
  - COVID-19 [Recovered/Resolved]

NARRATIVE: CASE EVENT DATE: 20210101
